FAERS Safety Report 7034490-5 (Version None)
Quarter: 2010Q4

REPORT INFORMATION
  Report Type: 
  Country: None (occurrence: None)
  Receive Date: 20101008
  Receipt Date: 20101004
  Transmission Date: 20110411
  Serious: Yes (Life-Threatening)
  Sender: FDA-Public Use
  Company Number: JP-ASTRAZENECA-2010SE41567

PATIENT
  Age: 81 Year
  Sex: Male
  Weight: 65 kg

DRUGS (13)
  1. IRESSA [Suspect]
     Indication: BRONCHIOLOALVEOLAR CARCINOMA
     Route: 048
     Dates: start: 20091111, end: 20100826
  2. TENORMIN [Concomitant]
     Indication: HYPERTENSION
     Route: 048
     Dates: end: 20100826
  3. ADALAT CC [Concomitant]
     Indication: HYPERTENSION
     Route: 048
     Dates: end: 20100826
  4. WARFARIN POTASSIUM [Concomitant]
     Indication: ATRIAL FIBRILLATION
     Route: 048
     Dates: end: 20100826
  5. SUNRYTHM [Concomitant]
     Indication: ATRIAL FIBRILLATION
     Route: 048
     Dates: end: 20100826
  6. PLAVIX [Concomitant]
     Indication: BENIGN PROSTATIC HYPERPLASIA
     Route: 048
     Dates: end: 20100826
  7. FLIVAS OD [Concomitant]
     Indication: BENIGN PROSTATIC HYPERPLASIA
     Route: 048
     Dates: end: 20100826
  8. MUCOSOLVAN [Concomitant]
     Indication: SPUTUM RETENTION
     Route: 048
     Dates: end: 20100826
  9. CLEANAL [Concomitant]
     Indication: SPUTUM RETENTION
     Route: 048
     Dates: end: 20100826
  10. PREDNISOLONE [Concomitant]
     Indication: DYSPNOEA
     Route: 048
     Dates: end: 20100826
  11. KLARICID [Concomitant]
     Indication: SPUTUM RETENTION
     Route: 048
     Dates: end: 20100826
  12. GASTER D [Concomitant]
     Indication: PEPTIC ULCER
     Route: 048
     Dates: end: 20100826
  13. SHIN-ISEIHAITO [Concomitant]
     Indication: SPUTUM RETENTION
     Route: 048
     Dates: start: 20100818, end: 20100826

REACTIONS (1)
  - GASTROINTESTINAL PERFORATION [None]
